FAERS Safety Report 9787510 (Version 4)
Quarter: 2015Q2

REPORT INFORMATION
  Report Type: Report from Study
  Country: CA (occurrence: CA)
  Receive Date: 20131230
  Receipt Date: 20150417
  Transmission Date: 20150821
  Serious: Yes (Death, Hospitalization)
  Sender: FDA-Public Use
  Company Number: CA-ROCHE-1322426

PATIENT
  Age: 43 Year
  Sex: Female
  Weight: 78.7 kg

DRUGS (6)
  1. PAMIDRONATE [Suspect]
     Active Substance: PAMIDRONATE DISODIUM
     Indication: BREAST CANCER METASTATIC
     Route: 042
     Dates: start: 200911
  2. HERCEPTIN [Suspect]
     Active Substance: TRASTUZUMAB
     Dosage: FIRST RPAP DOSE.
     Route: 042
     Dates: start: 20140122
  3. PERJETA [Suspect]
     Active Substance: PERTUZUMAB
     Indication: BREAST CANCER METASTATIC
     Route: 065
  4. HYDROCHLOROTHIAZIDE. [Concomitant]
     Active Substance: HYDROCHLOROTHIAZIDE
  5. CLONIDINE. [Concomitant]
     Active Substance: CLONIDINE
  6. HERCEPTIN [Suspect]
     Active Substance: TRASTUZUMAB
     Indication: BREAST CANCER METASTATIC
     Route: 042
     Dates: start: 2009, end: 20150216

REACTIONS (7)
  - Gastric infection [Recovered/Resolved]
  - Hallucination [Unknown]
  - Blood potassium abnormal [Unknown]
  - Blood test abnormal [Unknown]
  - Death [Fatal]
  - Drug hypersensitivity [Unknown]
  - Neoplasm malignant [Unknown]

NARRATIVE: CASE EVENT DATE: 20131127
